FAERS Safety Report 18972787 (Version 4)
Quarter: 2021Q2

REPORT INFORMATION
  Report Type: Spontaneous
  Country: US (occurrence: US)
  Receive Date: 20210305
  Receipt Date: 20210519
  Transmission Date: 20210717
  Serious: No
  Sender: FDA-Public Use
  Company Number: US-GLAXOSMITHKLINE-US2021AMR055559

PATIENT
  Sex: Female

DRUGS (1)
  1. MEPOLIZUMAB [Suspect]
     Active Substance: MEPOLIZUMAB
     Indication: BRONCHIOLITIS
     Dosage: 100 MG

REACTIONS (5)
  - Accidental exposure to product [Unknown]
  - Incorrect dose administered [Unknown]
  - Product complaint [Unknown]
  - Exposure via skin contact [Unknown]
  - Product use in unapproved indication [Unknown]
